FAERS Safety Report 17414293 (Version 3)
Quarter: 2022Q2

REPORT INFORMATION
  Report Type: Spontaneous
  Country: GB (occurrence: GB)
  Receive Date: 20200213
  Receipt Date: 20220413
  Transmission Date: 20220721
  Serious: Yes (Hospitalization, Other)
  Sender: FDA-Public Use
  Company Number: GB-TAKEDA-2020TUS007098

PATIENT
  Sex: Male

DRUGS (4)
  1. DEXAMETHASONE SODIUM PHOSPHATE [Suspect]
     Active Substance: DEXAMETHASONE SODIUM PHOSPHATE
     Indication: Plasma cell myeloma
     Route: 065
     Dates: start: 20190823
  2. LENALIDOMIDE [Suspect]
     Active Substance: LENALIDOMIDE
     Indication: Plasma cell myeloma
     Route: 065
     Dates: start: 20190823
  3. NINLARO [Suspect]
     Active Substance: IXAZOMIB CITRATE
     Indication: Plasma cell myeloma
     Route: 048
     Dates: start: 20190823
  4. NINLARO [Suspect]
     Active Substance: IXAZOMIB CITRATE
     Route: 048
     Dates: start: 20190823

REACTIONS (2)
  - Sepsis [Unknown]
  - Pharyngitis [Recovered/Resolved]

NARRATIVE: CASE EVENT DATE: 20210129
